FAERS Safety Report 11046005 (Version 2)
Quarter: 2015Q2

REPORT INFORMATION
  Report Type: Spontaneous
  Country: US (occurrence: US)
  Receive Date: 20150418
  Receipt Date: 20150526
  Transmission Date: 20150821
  Serious: No
  Sender: FDA-Public Use
  Company Number: US-JNJFOC-20150202068

PATIENT
  Age: 86 Year
  Sex: Female
  Weight: 49.9 kg

DRUGS (5)
  1. BUSPAR [Concomitant]
     Active Substance: BUSPIRONE HYDROCHLORIDE
     Indication: PRODUCT USED FOR UNKNOWN INDICATION
     Route: 065
  2. PLAVIX [Concomitant]
     Active Substance: CLOPIDOGREL BISULFATE
     Indication: PRODUCT USED FOR UNKNOWN INDICATION
     Route: 065
  3. HALDOL [Suspect]
     Active Substance: HALOPERIDOL
     Indication: AGITATION
     Route: 048
     Dates: start: 201212, end: 20150129
  4. HALDOL [Suspect]
     Active Substance: HALOPERIDOL
     Indication: DEMENTIA
     Route: 048
     Dates: start: 201212, end: 20150129
  5. MIRTAZAPINE. [Concomitant]
     Active Substance: MIRTAZAPINE
     Indication: PRODUCT USED FOR UNKNOWN INDICATION
     Route: 065

REACTIONS (2)
  - Dyskinesia [Unknown]
  - Product use issue [Unknown]

NARRATIVE: CASE EVENT DATE: 201212
